FAERS Safety Report 8032997-5 (Version None)
Quarter: 2011Q4

REPORT INFORMATION
  Report Type: 
  Country: None (occurrence: None)
  Receive Date: 20111223
  Receipt Date: 20111214
  Transmission Date: 20120403
  Serious: Yes (Hospitalization, Other)
  Sender: FDA-Public Use
  Company Number: 2011SP058412

PATIENT
  Age: 26 Year
  Sex: Female

DRUGS (4)
  1. PURIFIED MENOPAUSAL GONADOTROPHIN (GONADOTROPINS) [Suspect]
     Indication: OVULATION INDUCTION
  2. METFORMIN HCL [Concomitant]
  3. CHORIONIC GONADOTROPIN [Suspect]
     Indication: PRODUCT USED FOR UNKNOWN INDICATION
  4. CLOMIPHENE CITRATE [Suspect]
     Indication: OVULATION INDUCTION

REACTIONS (7)
  - VAGINAL HAEMORRHAGE [None]
  - ABORTION INDUCED [None]
  - HYPEREMESIS GRAVIDARUM [None]
  - BENIGN HYDATIDIFORM MOLE [None]
  - OVARIAN HYPERSTIMULATION SYNDROME [None]
  - ABORTION THREATENED [None]
  - OVARIAN ENLARGEMENT [None]
